FAERS Safety Report 9962490 (Version 1)
Quarter: 2014Q1

REPORT INFORMATION
  Report Type: Report from Study
  Country: US (occurrence: US)
  Receive Date: 20140305
  Receipt Date: 20140305
  Transmission Date: 20141002
  Serious: No
  Sender: FDA-Public Use
  Company Number: US-ABBVIE-13P-163-1116855-00

PATIENT
  Sex: Female
  Weight: 83.99 kg

DRUGS (3)
  1. HUMIRA [Suspect]
     Indication: PUSTULAR PSORIASIS
     Dates: start: 2009, end: 2009
  2. HUMIRA [Suspect]
     Dates: start: 2009, end: 2011
  3. EUCERIN [Concomitant]
     Indication: PSORIASIS

REACTIONS (3)
  - Rash papular [Recovered/Resolved]
  - Psoriasis [Recovered/Resolved]
  - Rash papular [Recovered/Resolved]
